FAERS Safety Report 14177650 (Version 1)
Quarter: 2017Q4

REPORT INFORMATION
  Report Type: Report from Study
  Country: US (occurrence: US)
  Receive Date: 20171110
  Receipt Date: 20171110
  Transmission Date: 20180321
  Serious: No
  Sender: FDA-Public Use
  Company Number: US-ACADIA PHARMACEUTICALS INC.-ACA-2017-005742

PATIENT
  Sex: Male

DRUGS (1)
  1. NUPLAZID [Suspect]
     Active Substance: PIMAVANSERIN TARTRATE
     Indication: PRODUCT USED FOR UNKNOWN INDICATION
     Dosage: 2 TABLET, QD
     Route: 048
     Dates: start: 20170922, end: 20170925

REACTIONS (3)
  - Dizziness [Unknown]
  - Gait disturbance [Unknown]
  - Posture abnormal [Unknown]

NARRATIVE: CASE EVENT DATE: 20170923
